FAERS Safety Report 4407189-9 (Version None)
Quarter: 2004Q3

REPORT INFORMATION
  Report Type: 
  Country: None (occurrence: None)
  Receive Date: 20040723
  Receipt Date: 20040723
  Transmission Date: 20050211
  Serious: Yes (Other)
  Sender: FDA-Public Use
  Company Number: None

PATIENT
  Age: 64 Year
  Sex: Female
  Weight: 98.9 kg

DRUGS (1)
  1. OXYBUTYNIN CHLORIDE [Suspect]

REACTIONS (1)
  - DRY MOUTH [None]
